FAERS Safety Report 6120806-0 (Version None)
Quarter: 2009Q1

REPORT INFORMATION
  Report Type: 
  Country: None (occurrence: None)
  Receive Date: 20090312
  Receipt Date: 20090226
  Transmission Date: 20090719
  Serious: Yes (Hospitalization)
  Sender: FDA-Public Use
  Company Number: 2009000399

PATIENT
  Age: 62 Year
  Sex: Female
  Weight: 86 kg

DRUGS (5)
  1. ERLOTINIB (ERLOTINIB) (TABLET) (ERLOTINIB) [Suspect]
     Indication: NON-SMALL CELL LUNG CANCER
     Dosage: (100 MG,QD),ORAL
     Route: 048
     Dates: start: 20081120, end: 20090112
  2. CP-751, 871 [Suspect]
     Indication: NON-SMALL CELL LUNG CANCER
     Dosage: (1800 MG,DAY 1-2 EVERY 3 WEEKS),INTRAVENOUS
     Route: 042
     Dates: start: 20081120, end: 20090102
  3. COTAREG (HYDROCHLOROTHIAZIDE) [Concomitant]
  4. OMEPRAZOLE [Concomitant]
  5. ALLOPURINOL [Concomitant]

REACTIONS (1)
  - HYPERGLYCAEMIA [None]
